FAERS Safety Report 10906952 (Version 1)
Quarter: 2015Q1

REPORT INFORMATION
  Report Type: Spontaneous
  Country: US (occurrence: None)
  Receive Date: 20150309
  Receipt Date: 20150309
  Transmission Date: 20150721
  Serious: Yes (Hospitalization)
  Sender: FDA-Public Use
  Company Number: None

PATIENT
  Age: 74 Year
  Sex: Female
  Weight: 80 kg

DRUGS (10)
  1. VALSARTAN/HCTZ 320 [Concomitant]
  2. COREG [Concomitant]
     Active Substance: CARVEDILOL
  3. OMEPRAZOLE. [Concomitant]
     Active Substance: OMEPRAZOLE
  4. DICLOFENAC [Suspect]
     Active Substance: DICLOFENAC
     Indication: BACK PAIN
     Dates: start: 20150218, end: 20150218
  5. MONTELUKAST [Concomitant]
     Active Substance: MONTELUKAST SODIUM
  6. TIZANIDINE (TIZANIDINE) [Suspect]
     Active Substance: TIZANIDINE
     Indication: BACK PAIN
     Dates: start: 20150218, end: 20150218
  7. ASPIRIN. [Concomitant]
     Active Substance: ASPIRIN
  8. METFORMIN [Concomitant]
     Active Substance: METFORMIN HYDROCHLORIDE
  9. ATORVASTATIN [Concomitant]
     Active Substance: ATORVASTATIN
  10. OXYBUTYNIN [Concomitant]
     Active Substance: OXYBUTYNIN

REACTIONS (10)
  - Erythema [None]
  - Dyspnoea [None]
  - Wheezing [None]
  - No therapeutic response [None]
  - Swollen tongue [None]
  - Dry mouth [None]
  - Pruritus generalised [None]
  - Blood pressure diastolic decreased [None]
  - Discomfort [None]
  - Hypoxia [None]

NARRATIVE: CASE EVENT DATE: 20150218
